FAERS Safety Report 20529775 (Version 3)
Quarter: 2025Q3

REPORT INFORMATION
  Report Type: Spontaneous
  Country: EU (occurrence: EU)
  Receive Date: 20220301
  Receipt Date: 20250715
  Transmission Date: 20251021
  Serious: Yes (Hospitalization, Other)
  Sender: NOVO NORDISK
  Company Number: None

PATIENT
  Age: 63 Year
  Sex: Male

DRUGS (5)
  1. COMIRNATY [Concomitant]
     Indication: COVID-19 immunisation
     Dates: start: 20210505, end: 20210505
  2. COMIRNATY [Concomitant]
     Dates: start: 20210609, end: 20210609
  3. EZETIMIBE [Concomitant]
     Active Substance: EZETIMIBE
     Indication: Hypercholesterolaemia
     Route: 048
     Dates: start: 20181204
  4. SAXENDA [Suspect]
     Active Substance: LIRAGLUTIDE
     Indication: Overweight
     Dosage: 3 MG, QD
     Dates: start: 20210505, end: 20210626
  5. SAXENDA [Suspect]
     Active Substance: LIRAGLUTIDE
     Route: 030

REACTIONS (4)
  - Visual impairment [Not Recovered/Not Resolved]
  - Optic nerve injury [Not Recovered/Not Resolved]
  - Photophobia [Not Recovered/Not Resolved]
  - Vision blurred [Not Recovered/Not Resolved]

NARRATIVE: CASE EVENT DATE: 20210601
